FAERS Safety Report 14122622 (Version 1)
Quarter: 2017Q4

REPORT INFORMATION
  Report Type: Spontaneous
  Country: AU (occurrence: AU)
  Receive Date: 20171024
  Receipt Date: 20171024
  Transmission Date: 20180321
  Serious: Yes (Other)
  Sender: FDA-Public Use
  Company Number: AU-009507513-1710AUS009095

PATIENT
  Age: 57 Year
  Sex: Male

DRUGS (13)
  1. AMIODARONE HYDROCHLORIDE. [Suspect]
     Active Substance: AMIODARONE HYDROCHLORIDE
     Dosage: 400 MG, DAILY
     Route: 048
     Dates: start: 20170128
  2. CARTIA (ASPIRIN) [Concomitant]
     Active Substance: ASPIRIN
  3. SPIRONOLACTONE. [Concomitant]
     Active Substance: SPIRONOLACTONE
  4. EZETIMIBE MSD [Suspect]
     Active Substance: EZETIMIBE
     Dosage: 5 MG, THREE TIMES WEEKLY
     Route: 048
     Dates: start: 20161219, end: 20170127
  5. FORXIGA [Suspect]
     Active Substance: DAPAGLIFLOZIN
     Dosage: 10 MG, DAILY
  6. AMITRIPTYLINE HYDROCHLORIDE. [Concomitant]
     Active Substance: AMITRIPTYLINE HYDROCHLORIDE
  7. ACETAMINOPHEN. [Concomitant]
     Active Substance: ACETAMINOPHEN
  8. SOMAC [Concomitant]
     Active Substance: PANTOPRAZOLE SODIUM
  9. FUROSEMIDE. [Concomitant]
     Active Substance: FUROSEMIDE
  10. DIAMICRON [Concomitant]
     Active Substance: GLICLAZIDE
  11. METOPROLOL. [Concomitant]
     Active Substance: METOPROLOL
  12. ROSUVASTATIN. [Suspect]
     Active Substance: ROSUVASTATIN
     Dosage: 10 MG, DAILY
     Route: 048
     Dates: start: 20170128, end: 20170210
  13. PLAVIX [Concomitant]
     Active Substance: CLOPIDOGREL BISULFATE

REACTIONS (5)
  - Balanoposthitis [Unknown]
  - Fatigue [Unknown]
  - Dizziness [Unknown]
  - Penile blister [Recovering/Resolving]
  - Dysgeusia [Unknown]
